FAERS Safety Report 5086526-9 (Version None)
Quarter: 2006Q3

REPORT INFORMATION
  Report Type: 
  Country: None (occurrence: None)
  Receive Date: 20060821
  Receipt Date: 20060821
  Transmission Date: 20061208
  Serious: No
  Sender: FDA-Public Use
  Company Number: None

PATIENT
  Age: 53 Year
  Sex: Male
  Weight: 136.0791 kg

DRUGS (1)
  1. CELEXA [Suspect]
     Indication: DEPRESSION
     Dosage: 80MG  PER DAY   PO
     Route: 048
     Dates: start: 20011001, end: 20060507

REACTIONS (2)
  - PARAESTHESIA [None]
  - TREATMENT NONCOMPLIANCE [None]
